FAERS Safety Report 11703393 (Version 1)
Quarter: 2015Q4

REPORT INFORMATION
  Report Type: Report from Study
  Country: BR (occurrence: BR)
  Receive Date: 20151105
  Receipt Date: 20151105
  Transmission Date: 20160304
  Serious: Yes (Other)
  Sender: FDA-Public Use
  Company Number: BR-BAXALTA-2015BLT002465

PATIENT
  Sex: Male
  Weight: 116 kg

DRUGS (3)
  1. FEIBA [Suspect]
     Active Substance: ANTI-INHIBITOR COAGULANT COMPLEX
     Indication: INHIBITING ANTIBODIES
     Dosage: UNK, EVERY 30-40 DAYS, ON DEMAND
     Route: 065
  2. FEIBA [Suspect]
     Active Substance: ANTI-INHIBITOR COAGULANT COMPLEX
     Indication: HAEMORRHAGE
     Dosage: 1250 IU, 2X A WEEK
     Dates: start: 2010
  3. FEIBA [Suspect]
     Active Substance: ANTI-INHIBITOR COAGULANT COMPLEX
     Indication: HAEMORRHAGE PROPHYLAXIS

REACTIONS (4)
  - Arthritis [Unknown]
  - Haemorrhage [Unknown]
  - Postoperative wound complication [Unknown]
  - Foot deformity [Unknown]
